FAERS Safety Report 21084362 (Version 1)
Quarter: 2022Q3

REPORT INFORMATION
  Report Type: Spontaneous
  Country: US (occurrence: US)
  Receive Date: 20220714
  Receipt Date: 20220714
  Transmission Date: 20221026
  Serious: No
  Sender: FDA-Public Use
  Company Number: US-JAZZ-2022-US-017640

PATIENT
  Age: 23 Year
  Sex: Male

DRUGS (5)
  1. EPIDIOLEX [Suspect]
     Active Substance: CANNABIDIOL
     Indication: Lennox-Gastaut syndrome
     Dosage: 9 MILLILITER
     Route: 048
     Dates: start: 20200408
  2. DILANTIN [Concomitant]
     Active Substance: PHENYTOIN
  3. ONFI [Concomitant]
     Active Substance: CLOBAZAM
  4. FOLIC ACID [Concomitant]
     Active Substance: FOLIC ACID
  5. PHENOBARBITAL [Concomitant]
     Active Substance: PHENOBARBITAL

REACTIONS (1)
  - Weight decreased [Unknown]

NARRATIVE: CASE EVENT DATE: 20211115
